FAERS Safety Report 5635282-1 (Version None)
Quarter: 2008Q1

REPORT INFORMATION
  Report Type: 
  Country: None (occurrence: None)
  Receive Date: 20080222
  Receipt Date: 20080211
  Transmission Date: 20080703
  Serious: Yes (Hospitalization)
  Sender: FDA-Public Use
  Company Number: US-PFIZER INC-2007107578

PATIENT
  Age: 70 Year
  Sex: Male
  Weight: 76 kg

DRUGS (11)
  1. SUTENT [Suspect]
     Indication: NON-SMALL CELL LUNG CANCER
     Route: 048
     Dates: start: 20071119, end: 20071203
  2. SUTENT [Suspect]
     Route: 048
     Dates: start: 20071211, end: 20071223
  3. ERLOTINIB [Suspect]
     Indication: NON-SMALL CELL LUNG CANCER
     Route: 048
     Dates: start: 20071119, end: 20071203
  4. ERLOTINIB [Suspect]
     Route: 048
     Dates: start: 20071211, end: 20071223
  5. ASPIRIN [Concomitant]
     Route: 048
  6. VITAMIN CAP [Concomitant]
     Dosage: TEXT:1 TAB-FREQ:DAILY
  7. XALATAN [Concomitant]
     Dosage: FREQ:DAILY
     Route: 047
  8. DOXYCYCLINE [Concomitant]
     Route: 048
  9. VITAMIN D [Concomitant]
     Dosage: TEXT:400 UNITS-FREQ:DAILY
     Route: 048
  10. METRONIDAZOLE HCL [Concomitant]
     Indication: RASH
     Route: 061
  11. METRONIDAZOLE HCL [Concomitant]
     Indication: FOLLICULITIS

REACTIONS (2)
  - ABDOMINAL PAIN [None]
  - ILEUS [None]
